FAERS Safety Report 7178543-X (Version None)
Quarter: 2010Q4

REPORT INFORMATION
  Report Type: 
  Country: None (occurrence: None)
  Receive Date: 20101221
  Receipt Date: 20101209
  Transmission Date: 20110411
  Serious: Yes (Hospitalization)
  Sender: FDA-Public Use
  Company Number: US-BIOGENIDEC-2010BI038774

PATIENT
  Age: 57 Year
  Sex: Female
  Weight: 61 kg

DRUGS (5)
  1. TYSABRI [Suspect]
     Indication: MULTIPLE SCLEROSIS
     Route: 042
     Dates: start: 20100827
  2. ALBUTEROL [Concomitant]
     Indication: ASTHMA
  3. NORVASC [Concomitant]
     Indication: HYPERTENSION
  4. CELEBREX [Concomitant]
  5. REQUIP [Concomitant]
     Indication: RESTLESS LEGS SYNDROME

REACTIONS (3)
  - BLOOD POTASSIUM DECREASED [None]
  - MULTIPLE SCLEROSIS RELAPSE [None]
  - OSTEOMYELITIS [None]
